FAERS Safety Report 6582005-8 (Version None)
Quarter: 2010Q1

REPORT INFORMATION
  Report Type: 
  Country: None (occurrence: None)
  Receive Date: 20100215
  Receipt Date: 20100209
  Transmission Date: 20100710
  Serious: Yes (Hospitalization)
  Sender: FDA-Public Use
  Company Number: CH-MERCK-1002CHE00011

PATIENT
  Age: 65 Year
  Sex: Female

DRUGS (6)
  1. JANUMET [Suspect]
     Route: 048
  2. ALISKIREN FUMARATE [Suspect]
     Route: 048
  3. DICLOFENAC SODIUM [Suspect]
     Route: 048
  4. ALLOPURINOL [Suspect]
     Route: 048
  5. GLICLAZIDE [Concomitant]
     Route: 048
  6. METFORMIN [Concomitant]
     Route: 048

REACTIONS (5)
  - BLOOD CREATININE INCREASED [None]
  - DIARRHOEA [None]
  - DRUG TOXICITY [None]
  - RENAL FAILURE ACUTE [None]
  - RENAL TUBULAR NECROSIS [None]
